FAERS Safety Report 9964071 (Version 1)
Quarter: 2014Q1

REPORT INFORMATION
  Report Type: Report from Study
  Country: NO (occurrence: NO)
  Receive Date: 20140305
  Receipt Date: 20140305
  Transmission Date: 20141002
  Serious: Yes (Hospitalization)
  Sender: FDA-Public Use
  Company Number: NO-RB-062152-13

PATIENT
  Age: 39 Year
  Sex: Female

DRUGS (8)
  1. SUBOXONE UNSPECIFIED [Suspect]
     Indication: DRUG DEPENDENCE
     Dosage: AT THE TIME WHEN THE QUESTIONNAIRE WAS COMPLETED, PATIENT HAD BEEN ON SUBOXONE 1 MONTH
     Route: 065
  2. TETRAHYDROCANNABINOL [Suspect]
     Indication: PRODUCT USED FOR UNKNOWN INDICATION
     Dosage: DOSING DETAILS UNKNOWN
     Route: 065
  3. HEROIN [Suspect]
     Indication: PRODUCT USED FOR UNKNOWN INDICATION
     Dosage: DOSING DETAILS UNKNOWN; INJECTED
     Route: 042
  4. MORPHINE [Suspect]
     Indication: PRODUCT USED FOR UNKNOWN INDICATION
     Dosage: DOSING DETAILS UNKNOWN; INJECTED
     Route: 042
  5. MORPHINE [Suspect]
     Dosage: DOSING DETAILS UNKNOWN; ORAL INTAKE
     Route: 048
  6. VALIUM [Concomitant]
     Indication: PRODUCT USED FOR UNKNOWN INDICATION
     Dosage: DOSING DETAILS UNKNOWN
     Route: 065
  7. SOBRIL [Concomitant]
     Indication: PRODUCT USED FOR UNKNOWN INDICATION
     Dosage: DOSING DETAILS UNKNOWN
     Route: 065
  8. APODORM [Concomitant]
     Indication: PRODUCT USED FOR UNKNOWN INDICATION
     Dosage: DOSING DETAILS UNKNOWN
     Route: 065

REACTIONS (3)
  - Investigation [Unknown]
  - Substance abuse [Unknown]
  - Drug withdrawal syndrome [Unknown]
